FAERS Safety Report 23287225 (Version 1)
Quarter: 2023Q4

REPORT INFORMATION
  Report Type: Spontaneous
  Country: US (occurrence: US)
  Receive Date: 20231212
  Receipt Date: 20231212
  Transmission Date: 20240109
  Serious: Yes (Hospitalization)
  Sender: FDA-Public Use
  Company Number: US-TEVA-VS-3135022

PATIENT
  Age: 75 Year

DRUGS (1)
  1. AMIODARONE [Suspect]
     Active Substance: AMIODARONE
     Indication: Atrial fibrillation
     Route: 065

REACTIONS (4)
  - Hypothyroidism [Recovering/Resolving]
  - Cardiomegaly [Recovering/Resolving]
  - Cardiac failure [Recovering/Resolving]
  - Hyponatraemia [Recovering/Resolving]
